FAERS Safety Report 7997776-3 (Version None)
Quarter: 2011Q4

REPORT INFORMATION
  Report Type: 
  Country: None (occurrence: None)
  Receive Date: 20111221
  Receipt Date: 20110429
  Transmission Date: 20120403
  Serious: No
  Sender: FDA-Public Use
  Company Number: US-PFIZER INC-K201100517

PATIENT
  Age: 19 Year
  Sex: Female
  Weight: 58.503 kg

DRUGS (1)
  1. EPIPEN [Suspect]
     Dosage: 0.3 MG, SINGLE
     Route: 030
     Dates: start: 20110429, end: 20110429

REACTIONS (3)
  - NO ADVERSE EVENT [None]
  - ACCIDENTAL EXPOSURE [None]
  - EXPIRED DRUG ADMINISTERED [None]
